FAERS Safety Report 4949199-9 (Version None)
Quarter: 2006Q1

REPORT INFORMATION
  Report Type: 
  Country: None (occurrence: None)
  Receive Date: 20060321
  Receipt Date: 20060314
  Transmission Date: 20060701
  Serious: Yes (Death)
  Sender: FDA-Public Use
  Company Number: US-SANOFI-SYNTHELABO-A03200601418

PATIENT
  Sex: Male

DRUGS (9)
  1. PLAVIX [Suspect]
     Indication: DRUG USE FOR UNKNOWN INDICATION
     Dosage: UNK
     Route: 048
  2. LASIX [Concomitant]
     Dosage: UNK
     Route: 065
  3. POTASSIUM [Concomitant]
     Dosage: UNK
     Route: 065
  4. ASPIRIN [Concomitant]
     Dosage: UNK
     Route: 065
  5. ISOSORBIDE [Concomitant]
     Dosage: UNK
     Route: 065
  6. ALBUTEROL [Concomitant]
     Dosage: UNK
     Route: 065
  7. PROTONIX [Concomitant]
     Dosage: UNK
     Route: 065
  8. ADVAIR DISKUS 100/50 [Concomitant]
     Dosage: UNK
     Route: 065
  9. PACERONE [Concomitant]
     Dosage: UNK
     Route: 065

REACTIONS (1)
  - MYOCARDIAL INFARCTION [None]
